FAERS Safety Report 26175844 (Version 1)
Quarter: 2025Q4

REPORT INFORMATION
  Report Type: Spontaneous
  Country: US (occurrence: US)
  Receive Date: 20251218
  Receipt Date: 20251218
  Transmission Date: 20260117
  Serious: No
  Sender: TAKEDA
  Company Number: US-TAKEDA-2025TUS114722

PATIENT

DRUGS (2)
  1. EOHILIA [Suspect]
     Active Substance: BUDESONIDE
     Indication: Product used for unknown indication
     Dosage: 2 DOSAGE FORM, BID
  2. DUPIXENT [Concomitant]
     Active Substance: DUPILUMAB
     Dosage: UNK UNK, 1/WEEK

REACTIONS (2)
  - Chest discomfort [Unknown]
  - Oesophageal irritation [Unknown]
